FAERS Safety Report 16047094 (Version 1)
Quarter: 2019Q1

REPORT INFORMATION
  Report Type: Spontaneous
  Country: US (occurrence: US)
  Receive Date: 20190207
  Receipt Date: 20190207
  Transmission Date: 20190418
  Serious: Yes (Hospitalization)
  Sender: FDA-Public Use
  Company Number: None

PATIENT
  Age: 65 Year
  Sex: Male
  Weight: 96.16 kg

DRUGS (2)
  1. CEFAZOLIN 10GM [Suspect]
     Active Substance: CEFAZOLIN
     Indication: BURSITIS
  2. CEFAZOLIN 1GM [Suspect]
     Active Substance: CEFAZOLIN
     Indication: INFECTION
     Route: 042
     Dates: start: 20190122, end: 20190125

REACTIONS (1)
  - Generalised tonic-clonic seizure [None]

NARRATIVE: CASE EVENT DATE: 20190125
